FAERS Safety Report 8289832-X (Version None)
Quarter: 2012Q2

REPORT INFORMATION
  Report Type: 
  Country: None (occurrence: None)
  Receive Date: 20120417
  Receipt Date: 20120410
  Transmission Date: 20120825
  Serious: Yes (Other)
  Sender: FDA-Public Use
  Company Number: JP-PFIZER INC-2012083332

PATIENT
  Age: 64 Year
  Sex: Female
  Weight: 59 kg

DRUGS (25)
  1. WARFARIN SODIUM [Suspect]
     Dosage: 2.5 MG, DAILY
     Dates: start: 20110928, end: 20111024
  2. LASIX [Concomitant]
     Dosage: 40 MG, UNK
     Dates: start: 20111006, end: 20111115
  3. ALDACTONE [Concomitant]
     Dosage: 25 MG, UNK
     Dates: start: 20111003, end: 20111005
  4. DAI-KENCHU-TO [Concomitant]
     Dosage: 7.5 G, UNK
     Dates: start: 20110923, end: 20111020
  5. PHENYTOIN SODIUM CAP [Concomitant]
     Dosage: 200 MG, UNK
     Dates: start: 20110923, end: 20111115
  6. BISOPROLOL FUMARATE [Concomitant]
     Dosage: 5 MG, UNK
     Dates: start: 20111012, end: 20111115
  7. MAGNESIUM SULFATE [Concomitant]
     Dosage: 1000 MG, UNK
     Dates: start: 20111020, end: 20111115
  8. ZYVOX [Suspect]
     Indication: ENDOCARDITIS
     Dosage: 1200 MG,
     Route: 041
     Dates: start: 20110923, end: 20111020
  9. LANSOPRAZOLE [Concomitant]
     Dosage: 15 MG, UNK
     Dates: start: 20110923, end: 20111115
  10. LANIRAPID [Concomitant]
     Dosage: 0.05 MG, UNK
     Dates: start: 20110923, end: 20110926
  11. ENALAPRIL MALEATE [Concomitant]
     Dosage: 5 MG, UNK
     Dates: start: 20110923, end: 20111114
  12. ADONA [Concomitant]
     Dosage: 90 MG, UNK
     Dates: start: 20110923, end: 20110926
  13. LASIX [Concomitant]
     Dosage: 40 MG, UNK
     Dates: start: 20110927, end: 20111002
  14. LASIX [Concomitant]
     Dosage: 20 MG, UNK
     Dates: start: 20111003, end: 20111005
  15. ALDACTONE [Concomitant]
     Dosage: 50 MG, UNK
     Dates: start: 20110927, end: 20111002
  16. WARFARIN SODIUM [Suspect]
     Dosage: 3 MG, DAILY
     Dates: start: 20111025, end: 20111103
  17. SEROQUEL [Concomitant]
     Dosage: 50 MG, UNK
     Dates: start: 20110923, end: 20111020
  18. SLOW-K [Concomitant]
     Dosage: 1800 MG, UNK
     Dates: start: 20110923, end: 20110926
  19. ASPIRIN [Concomitant]
     Dosage: 100 MG, UNK
     Dates: start: 20110928, end: 20111115
  20. CARVEDILOL [Concomitant]
     Dosage: 2.5 MG, UNK
     Dates: start: 20111010, end: 20111011
  21. WARFARIN SODIUM [Suspect]
     Dosage: 3.5 MG, DAILY
     Dates: start: 20111104, end: 20111117
  22. MEROPENEM [Concomitant]
     Indication: ENDOCARDITIS
     Dosage: 1 G, 2X/DAY
     Route: 041
     Dates: start: 20110923, end: 20111004
  23. GASMOTIN [Concomitant]
     Dosage: 15 MG, UNK
     Dates: start: 20110923, end: 20111115
  24. MIYA BM [Concomitant]
     Dosage: 3 DF, UNK
     Dates: start: 20110923, end: 20111115
  25. ALDACTONE [Concomitant]
     Dosage: 50 MG, UNK
     Dates: start: 20111006, end: 20111115

REACTIONS (2)
  - INTERNATIONAL NORMALISED RATIO INCREASED [None]
  - PANCYTOPENIA [None]
